FAERS Safety Report 4723225-4 (Version None)
Quarter: 2005Q3

REPORT INFORMATION
  Report Type: 
  Country: None (occurrence: None)
  Receive Date: 20050725
  Receipt Date: 20050713
  Transmission Date: 20060218
  Serious: Yes (Hospitalization)
  Sender: FDA-Public Use
  Company Number: US-JNJFOC-20050703089

PATIENT
  Sex: Female
  Weight: 68.04 kg

DRUGS (5)
  1. INFLIXIMAB [Suspect]
     Indication: RHEUMATOID ARTHRITIS
     Route: 042
  2. CALCIUM GLUCONATE [Concomitant]
  3. CELEBREX [Concomitant]
  4. HUMULIN 70/30 [Concomitant]
  5. HUMULIN 70/30 [Concomitant]

REACTIONS (5)
  - ANGINA UNSTABLE [None]
  - ATHEROSCLEROSIS [None]
  - HEADACHE [None]
  - HYPERTENSION [None]
  - INFUSION RELATED REACTION [None]
